FAERS Safety Report 6340978-2 (Version None)
Quarter: 2009Q3

REPORT INFORMATION
  Report Type: 
  Country: None (occurrence: None)
  Receive Date: 20090904
  Receipt Date: 20090807
  Transmission Date: 20100115
  Serious: No
  Sender: FDA-Public Use
  Company Number: US-BAYER-200913267BCC

PATIENT
  Age: 40 Year
  Sex: Male
  Weight: 143 kg

DRUGS (1)
  1. ALEVE [Suspect]
     Indication: ARTHRALGIA
     Dosage: TOTAL DAILY DOSE: 220 MG  UNIT DOSE: 220 MG
     Route: 048
     Dates: start: 20090807

REACTIONS (4)
  - LIP SWELLING [None]
  - PRURITUS [None]
  - RASH [None]
  - URTICARIA [None]
